FAERS Safety Report 9080361 (Version 1)
Quarter: 2013Q1

REPORT INFORMATION
  Report Type: Spontaneous
  Country: CA (occurrence: CA)
  Receive Date: 20130218
  Receipt Date: 20130218
  Transmission Date: 20140127
  Serious: Yes (Other)
  Sender: FDA-Public Use
  Company Number: PHHY2013CA011866

PATIENT
  Sex: 0

DRUGS (17)
  1. GLEEVEC [Suspect]
     Dosage: 400 MG, QD
  2. DEXAMETHASONE [Suspect]
     Dosage: 9 MG/M2, BID
     Route: 048
  3. PREDNISONE [Suspect]
     Dosage: 10 MG, QID
     Route: 048
  4. HYDROCORTISONE [Suspect]
     Dosage: 15 MG, UNK
     Route: 037
  5. CYTARABINE [Suspect]
     Dosage: 40 MG, UNK
     Route: 037
  6. METHOTREXATE [Suspect]
     Dosage: 12 MG, UNK
  7. MERCAPTOPURINE [Suspect]
     Dosage: 50 MG/M2 EVERY ONE HOUR
     Route: 048
  8. LIPOSOMAL DOXORUBICIN HYDROCHLORIDE [Suspect]
     Dosage: 30 MG/M2, UNK
     Route: 042
  9. L-ASPARAGINASE [Suspect]
     Route: 030
  10. LEUCOVORIN [Suspect]
  11. THERAPEUTIC RADIOPHARMACEUTICALS [Suspect]
  12. ALENDRONATE [Concomitant]
  13. CALCIUM WITH VITAMIN D [Concomitant]
  14. FLUCONAZOLE [Concomitant]
  15. PENTAMIDINE ISETHIONATE [Concomitant]
  16. RISEDRONATE SODIUM [Concomitant]
  17. TRIMETHOPRIM SULFAMETHOXAZOLE [Concomitant]

REACTIONS (1)
  - Ileus [Unknown]
